FAERS Safety Report 20902504 (Version 8)
Quarter: 2023Q2

REPORT INFORMATION
  Report Type: Spontaneous
  Country: US (occurrence: US)
  Receive Date: 20220601
  Receipt Date: 20230627
  Transmission Date: 20230722
  Serious: Yes (Hospitalization, Other)
  Sender: FDA-Public Use
  Company Number: US-PFIZER INC-202200785283

PATIENT
  Age: 89 Year
  Sex: Female

DRUGS (3)
  1. IBRANCE [Suspect]
     Active Substance: PALBOCICLIB
     Dosage: 100 MG, CYCLIC (18/21 DAYS WITH THE REST OF THE DAYS OFF TO MAKE THE 28 DAY CYCLE)
  2. IBRANCE [Suspect]
     Active Substance: PALBOCICLIB
     Dosage: 100 MG, CYCLIC (17/21 DAYS WITH THE REST OF THE DAYS OFF TO MAKE THE 28 DAY CYCLE)
  3. IBRANCE [Suspect]
     Active Substance: PALBOCICLIB
     Dosage: UNK UNK, CYCLIC ( (21 DAY TREATMENT))

REACTIONS (6)
  - Pulmonary embolism [Unknown]
  - Off label use [Unknown]
  - Product use issue [Unknown]
  - Decreased appetite [Unknown]
  - White blood cell count decreased [Recovering/Resolving]
  - Lymphadenopathy [Unknown]
